FAERS Safety Report 7290220-3 (Version None)
Quarter: 2011Q1

REPORT INFORMATION
  Report Type: 
  Country: None (occurrence: None)
  Receive Date: 20110209
  Receipt Date: 20110209
  Transmission Date: 20110831
  Serious: Yes (Other)
  Sender: FDA-Public Use
  Company Number: None

PATIENT
  Age: 72 Year
  Sex: Female
  Weight: 68.0396 kg

DRUGS (2)
  1. ZICAM NOSE GEL [Suspect]
     Indication: SINUS DISORDER
     Dosage: 1 OR 2 2 TO 4 A DAY  3 OR 4 YEARS
  2. ZICAM NOSE GEL [Suspect]
     Indication: NASOPHARYNGITIS
     Dosage: 1 OR 2 2 TO 4 A DAY  3 OR 4 YEARS

REACTIONS (1)
  - ANOSMIA [None]
